FAERS Safety Report 6843026-0 (Version None)
Quarter: 2010Q3

REPORT INFORMATION
  Report Type: 
  Country: None (occurrence: None)
  Receive Date: 20100709
  Receipt Date: 20100622
  Transmission Date: 20110219
  Serious: Yes (Other)
  Sender: FDA-Public Use
  Company Number: 008582

PATIENT
  Age: 82 Year
  Sex: Male

DRUGS (16)
  1. MACUGEN [Suspect]
     Indication: MACULAR OEDEMA
     Dosage: INTRAOCULAR
     Route: 031
     Dates: start: 20091118
  2. HYZAAR [Concomitant]
  3. PANTOPRAZOLE SODIUM [Concomitant]
  4. KELTICAN N (CYTIDINE PHOSPHATE SODIUM, URIDINE TRIPHOSPHATE SODIUM) [Concomitant]
  5. NUTRITIONAL SUPPLEMENT (NUTRITIONAL SUPPLEMENT) [Concomitant]
  6. CALCIUM WITH VITAMIN D (CALCIUM PHOSPHATE, CALCIUM SODIUM LACTATE, ERG [Concomitant]
  7. MAGNESIUM (MAGNESIUM) [Concomitant]
  8. ZINC (ZINC) [Concomitant]
  9. ASPIRIN [Concomitant]
  10. TEBONIN (GINKGO BILBOA EXTRACT) [Concomitant]
  11. VIANI (FLUTICASONE PROPIONATE, SALMETEROL XINAFOATE) [Concomitant]
  12. SPIRIVA [Concomitant]
  13. VIGANTOLETTEN ^BAYER^ (COLECALCIFEROL) [Concomitant]
  14. FOSAMAX [Concomitant]
  15. IBUPROFEN [Concomitant]
  16. HYALURONATE SODIUM (HYALURONATE SODIUM) [Concomitant]

REACTIONS (1)
  - DRUG HYPERSENSITIVITY [None]
